FAERS Safety Report 7451126-X (Version None)
Quarter: 2011Q2

REPORT INFORMATION
  Report Type: 
  Country: None (occurrence: None)
  Receive Date: 20110502
  Receipt Date: 20110419
  Transmission Date: 20111010
  Serious: Yes (Hospitalization)
  Sender: FDA-Public Use
  Company Number: PHHY2011ZA34171

PATIENT
  Sex: Male
  Weight: 79.3 kg

DRUGS (3)
  1. TAREG [Suspect]
     Dosage: 80 MG
     Route: 048
  2. ATACAND [Concomitant]
     Indication: HYPERTENSION
  3. GLUCOPHAGE [Concomitant]
     Indication: DIABETES MELLITUS
     Dosage: 50 MG, BID

REACTIONS (1)
  - GLYCOSYLATED HAEMOGLOBIN INCREASED [None]
